FAERS Safety Report 8917859 (Version 1)
Quarter: 2012Q4

REPORT INFORMATION
  Report Type: 
  Country: BR (occurrence: BR)
  Receive Date: 20121120
  Receipt Date: 20121120
  Transmission Date: 20130627
  Serious: Yes (Other)
  Sender: FDA-Public Use
  Company Number: BR-US-EMD SERONO, INC.-7173370

PATIENT
  Sex: Female

DRUGS (5)
  1. REBIF [Suspect]
     Indication: RELAPSING-REMITTING MULTIPLE SCLEROSIS
     Dates: start: 200102
  2. DYPIRONE (DIPYRONE) [Concomitant]
     Indication: SOMNOLENCE
  3. DYPIRONE (DIPYRONE) [Concomitant]
     Indication: PYREXIA
  4. DORFLEX [Concomitant]
     Indication: SOMNOLENCE
  5. DORFLEX [Concomitant]
     Indication: PYREXIA

REACTIONS (1)
  - Myopia [Recovering/Resolving]
